FAERS Safety Report 9022221 (Version 2)
Quarter: 2013Q4

REPORT INFORMATION
  Report Type: Report from Study
  Country: JP (occurrence: JP)
  Receive Date: 20130118
  Receipt Date: 20131028
  Transmission Date: 20140711
  Serious: Yes (Life-Threatening)
  Sender: FDA-Public Use
  Company Number: JP-ACTELION-A-CH2013-77905

PATIENT
  Age: 57 Year
  Sex: Male
  Weight: 62.2 kg

DRUGS (13)
  1. TRACLEER [Suspect]
     Indication: PULMONARY ARTERIAL HYPERTENSION
     Dosage: 93.75 MG, BID
     Route: 048
     Dates: start: 20120404, end: 20120427
  2. TRACLEER [Suspect]
     Dosage: 62.5 MG, BID
     Route: 048
     Dates: start: 20120321, end: 20120403
  3. ARTIST [Suspect]
     Dosage: 1.25 MG, UNK
  4. WARFARIN POTASSIUM [Concomitant]
  5. PREDNISOLONE [Concomitant]
  6. FEBUXOSTAT [Concomitant]
  7. ATORVASTATIN CALCIUM [Concomitant]
  8. SARPOGRELATE HYDROCHLORIDE [Concomitant]
  9. ASPIRIN [Concomitant]
  10. LANSOPRAZOLE [Concomitant]
  11. FUROSEMIDE [Concomitant]
  12. MEXILETINE HYDROCHLORIDE [Concomitant]
  13. TOCOPHERYL NICOTINATE [Concomitant]

REACTIONS (5)
  - Cardiac failure [Recovered/Resolved]
  - Endotracheal intubation [Recovered/Resolved]
  - Mechanical ventilation [Recovered/Resolved]
  - Left ventricular failure [Recovered/Resolved]
  - Concomitant disease aggravated [Recovered/Resolved]
